FAERS Safety Report 18016034 (Version 5)
Quarter: 2021Q1

REPORT INFORMATION
  Report Type: Spontaneous
  Country: AU (occurrence: AU)
  Receive Date: 20200713
  Receipt Date: 20210126
  Transmission Date: 20210419
  Serious: Yes (Other)
  Sender: FDA-Public Use
  Company Number: AU-SA-2020SA151818

PATIENT
  Age: 65 Year
  Sex: Male
  Weight: 72 kg

DRUGS (7)
  1. DUPILUMAB [Suspect]
     Active Substance: DUPILUMAB
     Dosage: 300 MG, QOW
     Route: 058
     Dates: start: 202006
  2. SPIOLTO RESPIMAT [Concomitant]
     Active Substance: OLODATEROL HYDROCHLORIDE\TIOTROPIUM BROMIDE MONOHYDRATE
     Dosage: UNK
  3. DUPILUMAB [Suspect]
     Active Substance: DUPILUMAB
     Indication: ECZEMA
     Dosage: 300 MG, QOW
     Route: 058
     Dates: start: 20200515
  4. DUPILUMAB [Suspect]
     Active Substance: DUPILUMAB
     Indication: ASTHMA
     Dosage: 300 MG, QOW
     Route: 058
     Dates: start: 20200529
  5. ALVESCO [Concomitant]
     Active Substance: CICLESONIDE
     Dosage: UNK
  6. MONTELUKAST [Concomitant]
     Active Substance: MONTELUKAST SODIUM
     Dosage: UNK
  7. PREDNISOLONE. [Concomitant]
     Active Substance: PREDNISOLONE
     Dosage: UNK

REACTIONS (24)
  - Hypotension [Unknown]
  - Eosinophilia [Unknown]
  - Pollakiuria [Unknown]
  - Syncope [Recovered/Resolved]
  - Eye disorder [Recovering/Resolving]
  - Conjunctivitis [Unknown]
  - Urinary hesitation [Unknown]
  - Bowen^s disease [Recovering/Resolving]
  - Dysuria [Unknown]
  - Urine odour abnormal [Unknown]
  - Benign prostatic hyperplasia [Unknown]
  - Eye inflammation [Recovering/Resolving]
  - Eyelid irritation [Recovering/Resolving]
  - Condition aggravated [Recovering/Resolving]
  - Rhinorrhoea [Recovering/Resolving]
  - Urinary tract infection [Unknown]
  - Stomatitis [Recovered/Resolved]
  - Lacrimation increased [Recovered/Resolved]
  - Thrombocytosis [Unknown]
  - Conjunctival hyperaemia [Unknown]
  - Mouth ulceration [Recovered/Resolved]
  - Acrochordon [Unknown]
  - Blepharitis [Unknown]
  - Vision blurred [Recovered/Resolved]

NARRATIVE: CASE EVENT DATE: 2020
